FAERS Safety Report 8624594-5 (Version None)
Quarter: 2012Q3

REPORT INFORMATION
  Report Type: 
  Country: None (occurrence: None)
  Receive Date: 20120827
  Receipt Date: 20120813
  Transmission Date: 20120928
  Serious: Yes (Hospitalization)
  Sender: FDA-Public Use
  Company Number: BR-CELGENEUS-020-C5013-12081495

PATIENT
  Sex: Female
  Weight: 53.6 kg

DRUGS (1)
  1. LENALIDOMIDE [Suspect]
     Dosage: 2.5 MILLIGRAM
     Route: 048
     Dates: start: 20120806, end: 20120814

REACTIONS (1)
  - SPLENIC HAEMORRHAGE [None]
